FAERS Safety Report 25997199 (Version 1)
Quarter: 2025Q4

REPORT INFORMATION
  Report Type: Spontaneous
  Country: US (occurrence: US)
  Receive Date: 20251104
  Receipt Date: 20251104
  Transmission Date: 20260117
  Serious: No
  Sender: PFIZER
  Company Number: US-PFIZER INC-PV202500058858

PATIENT
  Age: 58 Year
  Sex: Female

DRUGS (4)
  1. TUKYSA [Suspect]
     Active Substance: TUCATINIB
     Dosage: 150 MG, 2X/DAY
  2. TUKYSA [Suspect]
     Active Substance: TUCATINIB
     Dosage: 150 MG TWICE DAILY FOR 2 WEEKS
  3. TUKYSA [Suspect]
     Active Substance: TUCATINIB
     Dosage: 300 MG TWICE DAILY
  4. TUKYSA [Suspect]
     Active Substance: TUCATINIB
     Dosage: 150 MG

REACTIONS (3)
  - Dyspepsia [Unknown]
  - Abdominal discomfort [Unknown]
  - Nausea [Unknown]
